FAERS Safety Report 8991145 (Version 1)
Quarter: 2012Q4

REPORT INFORMATION
  Report Type: Spontaneous
  Country: US (occurrence: None)
  Receive Date: 20121227
  Receipt Date: 20121227
  Transmission Date: 20130627
  Serious: Yes (Other)
  Sender: FDA-Public Use
  Company Number: None

PATIENT
  Age: 56 Year
  Sex: Male

DRUGS (1)
  1. XELODA 500MG TAB ROCHE/GENENTECH [Suspect]
     Indication: MALIGNANT NEOPLASM OF STOMACH
     Dosage: 1500mg bid po
     Route: 048
     Dates: start: 20121114, end: 20121219

REACTIONS (1)
  - Skin exfoliation [None]
